FAERS Safety Report 10551208 (Version 1)
Quarter: 2014Q4

REPORT INFORMATION
  Report Type: Spontaneous
  Country: US (occurrence: None)
  Receive Date: 20141028
  Receipt Date: 20141028
  Transmission Date: 20150529
  Serious: No
  Sender: FDA-Public Use
  Company Number: None

PATIENT
  Age: 68 Year
  Sex: Male
  Weight: 81.65 kg

DRUGS (5)
  1. AMLODIPINE BESYLATE. [Concomitant]
     Active Substance: AMLODIPINE BESYLATE
  2. EC-OMEPRAZOLE CAP [Concomitant]
  3. DICLOFEN [Concomitant]
  4. PRAVASTATIN SODIUM. [Suspect]
     Active Substance: PRAVASTATIN SODIUM
     Indication: BLOOD CHOLESTEROL INCREASED
     Dosage: 1 TAB BY MOUTH NIGHTTIME 1 AT NIGHT BY MOUTH
     Route: 048
     Dates: start: 20131223
  5. LISINOP/HCTZ TAB [Concomitant]

REACTIONS (6)
  - Headache [None]
  - Lip swelling [None]
  - Chills [None]
  - Fatigue [None]
  - Arthralgia [None]
  - Back pain [None]

NARRATIVE: CASE EVENT DATE: 201312
